FAERS Safety Report 4465848-6 (Version None)
Quarter: 2004Q3

REPORT INFORMATION
  Report Type: 
  Country: None (occurrence: None)
  Receive Date: 20040929
  Receipt Date: 20040929
  Transmission Date: 20050211
  Serious: Yes (Hospitalization)
  Sender: FDA-Public Use
  Company Number: None

PATIENT
  Age: 43 Year
  Sex: Male
  Weight: 49.8957 kg

DRUGS (12)
  1. TEMODAR [Suspect]
     Indication: OLIGODENDROGLIOMA
     Dosage: 170 MG QD ORAL
     Route: 048
     Dates: start: 20030328, end: 20040801
  2. BACTRIM DS [Concomitant]
  3. CLONAZEPAM [Concomitant]
  4. DEPAKOTE [Concomitant]
  5. IBUPROFEN [Concomitant]
  6. MULTI-VITAMINS [Concomitant]
  7. BECONASE [Concomitant]
  8. ADVAIR DISKUS 100/50 [Concomitant]
  9. RABEPRAZOLE SODIUM [Concomitant]
  10. PROZAC [Concomitant]
  11. SYNTHROID [Concomitant]
  12. TRILEPTAL [Concomitant]

REACTIONS (9)
  - BLOOD CHOLESTEROL ABNORMAL [None]
  - DIZZINESS [None]
  - LABYRINTHITIS [None]
  - MULTIPLE ALLERGIES [None]
  - NAUSEA [None]
  - NEUROPATHY [None]
  - VERTIGO POSITIONAL [None]
  - VESTIBULAR DISORDER [None]
  - VOMITING [None]
